FAERS Safety Report 14402817 (Version 1)
Quarter: 2018Q1

REPORT INFORMATION
  Report Type: Spontaneous
  Country: US (occurrence: US)
  Receive Date: 20180117
  Receipt Date: 20180117
  Transmission Date: 20180509
  Serious: Yes (Other)
  Sender: FDA-Public Use
  Company Number: US-PFIZER INC-2018021291

PATIENT
  Age: 3 Year
  Sex: Male

DRUGS (1)
  1. GEODON [Suspect]
     Active Substance: ZIPRASIDONE HYDROCHLORIDE\ZIPRASIDONE MESYLATE
     Dosage: 100 MG, DAILY (20 MG IN THE MORNING AND 80 MG IN THE EVENING)

REACTIONS (2)
  - Paternal exposure timing unspecified [Unknown]
  - Autism spectrum disorder [Unknown]
